FAERS Safety Report 24562689 (Version 3)
Quarter: 2024Q4

REPORT INFORMATION
  Report Type: Spontaneous
  Country: JP (occurrence: JP)
  Receive Date: 20241029
  Receipt Date: 20241211
  Transmission Date: 20250114
  Serious: Yes (Life-Threatening)
  Sender: RADIUS PHARM
  Company Number: JP-RADIUS HEALTH INC.-2024JP008589

PATIENT
  Age: 95 Year
  Sex: Female

DRUGS (3)
  1. ABALOPARATIDE [Suspect]
     Active Substance: ABALOPARATIDE
     Indication: Osteoporosis
     Dosage: 80 MICROGRAM
     Route: 058
     Dates: start: 20240830, end: 20240830
  2. LOXOPROFEN SODIUM DIHYDRATE [Concomitant]
     Active Substance: LOXOPROFEN SODIUM DIHYDRATE
     Indication: Femur fracture
     Dosage: 180 MILLIGRAM/DAY
     Route: 048
     Dates: start: 20240826, end: 20240830
  3. REBAMIPIDE [Concomitant]
     Active Substance: REBAMIPIDE
     Indication: Femur fracture
     Dosage: 300 MILLIGRAM/ DAY
     Route: 048
     Dates: start: 20240826, end: 20240830

REACTIONS (2)
  - Cardiac failure chronic [Recovered/Resolved]
  - Hypoxia [Recovered/Resolved]

NARRATIVE: CASE EVENT DATE: 20240830
